FAERS Safety Report 8906239 (Version 1)
Quarter: 2012Q4

REPORT INFORMATION
  Report Type: Spontaneous
  Country: US (occurrence: None)
  Receive Date: 20121107
  Receipt Date: 20121107
  Transmission Date: 20130627
  Serious: Yes (Other)
  Sender: FDA-Public Use
  Company Number: 1210-625

PATIENT
  Age: 71 Year
  Sex: Female
  Weight: 53.98 kg

DRUGS (5)
  1. EYLEA [Suspect]
     Indication: CENTRAL RETINAL VEIN OCCLUSION
     Dosage: intravitreal
     Dates: start: 20120928
  2. KEFLEX (CEFALEXIN) [Concomitant]
  3. SIMVASTATIN (SIMVASTATIN) [Concomitant]
  4. VITAMINS (KAPSOVIT) [Concomitant]
  5. XANAX (ALPRAZOLAM) [Concomitant]

REACTIONS (3)
  - Urinary tract infection [None]
  - Urine odour abnormal [None]
  - Chromaturia [None]
